FAERS Safety Report 6529808-3 (Version None)
Quarter: 2010Q1

REPORT INFORMATION
  Report Type: 
  Country: None (occurrence: None)
  Receive Date: 20100107
  Receipt Date: 20100104
  Transmission Date: 20100710
  Serious: Yes (Other)
  Sender: FDA-Public Use
  Company Number: A0836270A

PATIENT
  Age: 32 Year
  Sex: Female
  Weight: 76.4 kg

DRUGS (1)
  1. RELENZA [Suspect]
     Indication: PROPHYLAXIS
     Dosage: 10MG PER DAY
     Route: 055
     Dates: start: 20090901, end: 20090910

REACTIONS (2)
  - ASTHMA [None]
  - CHEST PAIN [None]
